FAERS Safety Report 10373654 (Version 1)
Quarter: 2014Q1

REPORT INFORMATION
  Report Type: Spontaneous
  Country: US (occurrence: None)
  Receive Date: 20140306
  Receipt Date: 20140306
  Transmission Date: 20141002
  Serious: Yes (Other)
  Sender: FDA-Public Use
  Company Number: 163-21880-13033848

PATIENT
  Age: 62 Year
  Sex: Male

DRUGS (9)
  1. REVLIMID (LENALIDOMIDE) (15 MILLIGRAM, CAPSULES) [Suspect]
     Indication: PLASMA CELL MYELOMA
     Dosage: 15 MG, 21 IN 21 D, PO
     Route: 048
     Dates: start: 20121018, end: 20130315
  2. AMBIEN (ZOLPIDEM TARTRATE) [Concomitant]
  3. COENZYME Q-10 (UBIDECARENONE) [Concomitant]
  4. DEXAMETHASONE [Concomitant]
  5. FLEXERIL (CYCLOBENZAPRINE HYDROCHLORIDE) [Concomitant]
  6. HYZAAR [Concomitant]
  7. LORTAB (VICODIN) [Concomitant]
  8. METHADONE HCL (METHADONE HYDROCHLORIDE) [Concomitant]
  9. POTASSIUM CHLORIDE CR (POTASSIUM CHLORIDE) [Concomitant]

REACTIONS (2)
  - Neutrophil count decreased [None]
  - Viral upper respiratory tract infection [None]
